FAERS Safety Report 8347851-9 (Version None)
Quarter: 2012Q2

REPORT INFORMATION
  Report Type: 
  Country: None (occurrence: None)
  Receive Date: 20120509
  Receipt Date: 20120430
  Transmission Date: 20120825
  Serious: Yes (Hospitalization)
  Sender: FDA-Public Use
  Company Number: DE-GLAXOSMITHKLINE-D0074767A

PATIENT
  Sex: Male
  Weight: 58 kg

DRUGS (11)
  1. TRAMAGIT [Concomitant]
     Dosage: 100MG TWICE PER DAY
     Route: 048
     Dates: start: 20120125
  2. CALCIUM CARBONATE [Concomitant]
     Indication: RHEUMATOID ARTHRITIS
     Route: 048
     Dates: end: 20120101
  3. ARIXTRA [Suspect]
     Indication: THROMBOSIS PROPHYLAXIS
     Dosage: 2.5MG PER DAY
     Route: 058
     Dates: start: 20120125, end: 20120130
  4. ARCOXIA [Concomitant]
     Dosage: 90MG PER DAY
     Route: 048
     Dates: start: 20120125
  5. ENALAPRIL MALEATE [Concomitant]
     Route: 048
     Dates: end: 20120125
  6. METHOTREXATE [Concomitant]
     Indication: RHEUMATOID ARTHRITIS
     Route: 048
     Dates: end: 20120101
  7. ARAVA [Concomitant]
     Indication: RHEUMATOID ARTHRITIS
     Route: 048
     Dates: end: 20120101
  8. DICLOFENAC [Concomitant]
     Dosage: 50MG THREE TIMES PER DAY
     Route: 048
     Dates: start: 20120125
  9. PANTOPRAZOLE [Concomitant]
     Dosage: 20MG PER DAY
     Route: 048
     Dates: start: 20120125
  10. PREDNISOLONE [Concomitant]
     Indication: RHEUMATOID ARTHRITIS
     Route: 065
     Dates: end: 20120101
  11. NOVALGIN [Concomitant]
     Dosage: 20DROP FOUR TIMES PER DAY
     Route: 048
     Dates: start: 20120125

REACTIONS (1)
  - POST PROCEDURAL PULMONARY EMBOLISM [None]
